FAERS Safety Report 16165033 (Version 1)
Quarter: 2019Q2

REPORT INFORMATION
  Report Type: Spontaneous
  Country: IT (occurrence: IT)
  Receive Date: 20190405
  Receipt Date: 20190405
  Transmission Date: 20190711
  Serious: Yes (Other)
  Sender: FDA-Public Use
  Company Number: IT-009507513-1903ITA013256

PATIENT
  Age: 82 Year
  Sex: Male

DRUGS (2)
  1. GLICLAZIDE [Suspect]
     Active Substance: GLICLAZIDE
     Dosage: UNK
     Dates: start: 2015, end: 2019
  2. JANUVIA [Suspect]
     Active Substance: SITAGLIPTIN PHOSPHATE
     Dosage: UNK
     Route: 048
     Dates: start: 2015, end: 2019

REACTIONS (3)
  - Dermatitis bullous [Unknown]
  - Non-Hodgkin^s lymphoma [Unknown]
  - Pemphigoid [Unknown]

NARRATIVE: CASE EVENT DATE: 2016
